FAERS Safety Report 7340412-X (Version None)
Quarter: 2011Q1

REPORT INFORMATION
  Report Type: 
  Country: None (occurrence: None)
  Receive Date: 20110228
  Receipt Date: 20110216
  Transmission Date: 20110831
  Serious: Yes (Hospitalization)
  Sender: FDA-Public Use
  Company Number: 2009AL000389

PATIENT
  Age: 77 Year
  Sex: Male
  Weight: 80.8 kg

DRUGS (2)
  1. GEMCITABINE [Suspect]
     Indication: DIFFUSE LARGE B-CELL LYMPHOMA
     Dosage: 400 MG/M**2;QOW;IV
     Route: 042
     Dates: start: 20090813
  2. PRALATREXATE (PRALATREXATE) [Suspect]
     Indication: DIFFUSE LARGE B-CELL LYMPHOMA
     Dosage: 10 MG/M**2;QOW;IV
     Route: 042
     Dates: start: 20090812

REACTIONS (2)
  - PYREXIA [None]
  - RASH MACULO-PAPULAR [None]
